FAERS Safety Report 8115026-4 (Version None)
Quarter: 2012Q1

REPORT INFORMATION
  Report Type: 
  Country: None (occurrence: None)
  Receive Date: 20120206
  Receipt Date: 20120123
  Transmission Date: 20120608
  Serious: Yes (Death, Life-Threatening, Hospitalization, Other)
  Sender: FDA-Public Use
  Company Number: ES-CELGENEUS-144-50794-09041711

PATIENT
  Sex: Male
  Weight: 66 kg

DRUGS (29)
  1. CAPTOPRIL [Concomitant]
     Route: 065
  2. SODIUM HEPARIN [Concomitant]
     Indication: ATRIAL FIBRILLATION
     Dosage: VARIABLE
     Route: 065
     Dates: start: 20081120, end: 20081125
  3. ALBUMIN (HUMAN) [Concomitant]
     Indication: OEDEMA
  4. TAZOBACTAM [Concomitant]
     Dosage: 2 GRAM
     Route: 041
     Dates: start: 20090108, end: 20090113
  5. VIDAZA [Suspect]
     Route: 058
     Dates: start: 20081218, end: 20081224
  6. ALLOPURINOL [Concomitant]
     Dosage: 100-300
     Route: 065
  7. FUROSEMIDE [Concomitant]
     Indication: HEPATIC FAILURE
  8. ENOXAPARIN [Concomitant]
     Indication: ATRIAL FIBRILLATION
     Dosage: 60-80
     Route: 065
     Dates: start: 20081125
  9. MEROPENEM [Concomitant]
     Indication: PNEUMONIA
     Dosage: 3 GRAM
     Route: 041
     Dates: start: 20081125, end: 20081206
  10. IMIPENEM [Concomitant]
     Indication: RECTAL ABSCESS
     Route: 065
     Dates: start: 20081125, end: 20081125
  11. ALLOPURINOL [Concomitant]
     Indication: GOUT
  12. ACENOCOUMAROL [Concomitant]
     Indication: ATRIAL FIBRILLATION
     Route: 065
     Dates: end: 20081125
  13. TAZOBACTAM [Concomitant]
     Route: 041
     Dates: start: 20081208, end: 20081222
  14. INSULIN [Concomitant]
     Indication: DIABETES MELLITUS
     Dosage: VARIABLE
     Route: 065
  15. DIGOXIN [Concomitant]
     Indication: CARDIOMYOPATHY
     Route: 065
  16. FUROSEMIDE [Concomitant]
     Indication: CARDIOMYOPATHY
     Route: 065
  17. FLUCONAZOLE [Concomitant]
     Indication: CANDIDURIA
     Route: 065
     Dates: start: 20081209, end: 20081219
  18. CIPROFLOXACIN [Concomitant]
     Dosage: 1500 UNKNOWN
     Route: 065
     Dates: start: 20090126, end: 20090130
  19. PLATELETS [Concomitant]
     Route: 041
     Dates: start: 20081201
  20. ACARBOSA [Concomitant]
     Indication: DIABETES MELLITUS
     Route: 065
  21. PANTOPRAZOLE [Concomitant]
     Route: 065
     Dates: start: 20081125
  22. ALBUMIN (HUMAN) [Concomitant]
     Route: 065
     Dates: start: 20081204, end: 20090202
  23. MORPHINE [Concomitant]
     Route: 041
     Dates: start: 20081218
  24. TAZOBACTAM [Concomitant]
     Indication: RECTAL ABSCESS
     Route: 041
     Dates: start: 20081120, end: 20081125
  25. VIDAZA [Suspect]
     Route: 058
     Dates: start: 20090115, end: 20090119
  26. ENALAPRIL MALEATE [Concomitant]
     Route: 065
  27. CIPROFLOXACIN [Concomitant]
     Indication: SALMONELLOSIS
     Dosage: 500 UNKNOWN
     Route: 065
     Dates: start: 20081201, end: 20081208
  28. MORPHINE [Concomitant]
     Route: 065
     Dates: start: 20091126
  29. TAZOBACTAM [Concomitant]
     Indication: CELLULITIS

REACTIONS (8)
  - HEPATIC FAILURE [None]
  - THROMBOCYTOPENIA [None]
  - RECTAL CANCER STAGE 0 [None]
  - RESPIRATORY TRACT INFECTION [None]
  - BONE MARROW FAILURE [None]
  - HEPATOTOXICITY [None]
  - FEBRILE NEUTROPENIA [None]
  - SEPSIS [None]
